FAERS Safety Report 4623160-6 (Version None)
Quarter: 2005Q1

REPORT INFORMATION
  Report Type: 
  Country: None (occurrence: None)
  Receive Date: 20050329
  Receipt Date: 20050314
  Transmission Date: 20050727
  Serious: Yes (Death, Hospitalization)
  Sender: FDA-Public Use
  Company Number: 10588

PATIENT
  Age: 12 Month
  Sex: Male

DRUGS (4)
  1. DEXAMETHASONE [Suspect]
     Indication: ACUTE LYMPHOCYTIC LEUKAEMIA
  2. DOXORUBICIN HCL [Suspect]
     Indication: ACUTE LYMPHOCYTIC LEUKAEMIA
  3. VINCRISTINE [Suspect]
     Indication: ACUTE LYMPHOCYTIC LEUKAEMIA
     Dosage: 1.5 MG/M2 WEEKLY
  4. ASPARAGINASE [Suspect]
     Indication: ACUTE LYMPHOCYTIC LEUKAEMIA
     Dosage: 1000 IU/M2 ONCE

REACTIONS (12)
  - ADENOVIRAL HEPATITIS [None]
  - BACTERIAL CULTURE POSITIVE [None]
  - CATHETER RELATED INFECTION [None]
  - COAGULOPATHY [None]
  - HEPATIC ENCEPHALOPATHY [None]
  - HERPES SIMPLEX [None]
  - PATHOGEN RESISTANCE [None]
  - PSEUDOMONAS INFECTION [None]
  - RENAL IMPAIRMENT [None]
  - STAPHYLOCOCCAL INFECTION [None]
  - VIRAL LOAD INCREASED [None]
  - VIRUS SEROLOGY TEST POSITIVE [None]
